FAERS Safety Report 7235594-4 (Version None)
Quarter: 2011Q1

REPORT INFORMATION
  Report Type: 
  Country: None (occurrence: None)
  Receive Date: 20110120
  Receipt Date: 20110117
  Transmission Date: 20110831
  Serious: Yes (Life-Threatening, Hospitalization, Other)
  Sender: FDA-Public Use
  Company Number: PHHY2010JP01871

PATIENT
  Sex: Male
  Weight: 73 kg

DRUGS (1)
  1. NEORAL [Suspect]
     Indication: PSORIASIS
     Dosage: 150 MG, DAILY
     Route: 048
     Dates: start: 20071212, end: 20091228

REACTIONS (18)
  - RENAL FAILURE CHRONIC [None]
  - RENAL FAILURE ACUTE [None]
  - RETINOPATHY HYPERTENSIVE [None]
  - ARTERIOSCLEROTIC RETINOPATHY [None]
  - RETINAL DETACHMENT [None]
  - VISUAL ACUITY REDUCED [None]
  - MALIGNANT HYPERTENSION [None]
  - WHITE BLOOD CELL COUNT INCREASED [None]
  - VISION BLURRED [None]
  - NASOPHARYNGITIS [None]
  - GENERAL PHYSICAL HEALTH DETERIORATION [None]
  - BLINDNESS [None]
  - RETINAL HAEMORRHAGE [None]
  - RETINAL EXUDATES [None]
  - DISEASE PROGRESSION [None]
  - RENAL FAILURE [None]
  - PAPILLOEDEMA [None]
  - BLOOD BILIRUBIN INCREASED [None]
